FAERS Safety Report 15515522 (Version 1)
Quarter: 2018Q4

REPORT INFORMATION
  Report Type: Spontaneous
  Country: DE (occurrence: DE)
  Receive Date: 20181017
  Receipt Date: 20181017
  Transmission Date: 20190205
  Serious: Yes (Other)
  Sender: FDA-Public Use
  Company Number: DE-BRISTOL-MYERS SQUIBB COMPANY-BMS-2018-095006

PATIENT
  Age: 63 Year
  Sex: Male
  Weight: 126 kg

DRUGS (10)
  1. ELIQUIS [Suspect]
     Active Substance: APIXABAN
     Indication: PRODUCT USED FOR UNKNOWN INDICATION
     Dosage: 5 MG, BID
     Route: 065
  2. AMLODIPINE [Concomitant]
     Active Substance: AMLODIPINE BESYLATE
     Indication: HYPERTENSIVE HEART DISEASE
     Dosage: 1 DF, UNK
     Route: 065
  3. ELIQUIS [Suspect]
     Active Substance: APIXABAN
     Indication: DEEP VEIN THROMBOSIS
     Dosage: 10 MG, BID
     Route: 065
  4. PREDNISOLON                        /00016201/ [Concomitant]
     Active Substance: PREDNISOLONE
     Indication: POLYMYALGIA RHEUMATICA
     Dosage: 1 DF, UNK
     Route: 065
  5. CANDESARTAN. [Concomitant]
     Active Substance: CANDESARTAN
     Indication: HYPERTENSIVE HEART DISEASE
     Route: 065
  6. ETORICOXIB. [Concomitant]
     Active Substance: ETORICOXIB
     Indication: JOINT PROSTHESIS USER
     Dosage: 90 MG, QD
     Route: 065
  7. SPIRONOLACTON [Concomitant]
     Active Substance: SPIRONOLACTONE
     Indication: HYPERTENSIVE HEART DISEASE
     Route: 065
  8. PANTOPRAZOL                        /01263201/ [Concomitant]
     Active Substance: PANTOPRAZOLE
     Indication: PRODUCT USED FOR UNKNOWN INDICATION
     Dosage: 20 MG, BID
     Route: 065
  9. ALLOPURINOL. [Concomitant]
     Active Substance: ALLOPURINOL
     Indication: PRODUCT USED FOR UNKNOWN INDICATION
     Route: 065
  10. AERIUS                             /01009701/ [Concomitant]
     Active Substance: EBASTINE
     Indication: URTICARIA
     Route: 065

REACTIONS (12)
  - Fatigue [Unknown]
  - Myalgia [Unknown]
  - Gait disturbance [Unknown]
  - Rhabdomyolysis [Unknown]
  - Vasculitis [Unknown]
  - Oedema peripheral [Unknown]
  - Hepatitis [Unknown]
  - Rash [Unknown]
  - Erythema [Unknown]
  - Dizziness [Recovered/Resolved]
  - Burning sensation [Unknown]
  - Petechiae [Unknown]

NARRATIVE: CASE EVENT DATE: 2018
